FAERS Safety Report 7906063-0 (Version None)
Quarter: 2011Q4

REPORT INFORMATION
  Report Type: 
  Country: None (occurrence: None)
  Receive Date: 20111110
  Receipt Date: 20111110
  Transmission Date: 20120403
  Serious: Yes (Other)
  Sender: FDA-Public Use
  Company Number: None

PATIENT
  Age: 54 Year
  Sex: Female
  Weight: 81.646 kg

DRUGS (4)
  1. CEPHALEXIN [Concomitant]
     Indication: SINUSITIS
     Dosage: ONE CAPSULE
     Route: 048
     Dates: start: 20111101, end: 20111108
  2. CEPHALEXIN [Concomitant]
     Indication: EAR INFECTION
     Dosage: ONE CAPSULE
     Route: 048
     Dates: start: 20111101, end: 20111108
  3. SULFAMETHOXAZOLE AND TRIMETHOPRIM [Suspect]
     Indication: EAR INFECTION
     Dosage: ONE TABLET
     Route: 048
     Dates: start: 20111101, end: 20111108
  4. SULFAMETHOXAZOLE AND TRIMETHOPRIM [Suspect]
     Indication: SINUSITIS
     Dosage: ONE TABLET
     Route: 048
     Dates: start: 20111101, end: 20111108

REACTIONS (8)
  - EXTRASYSTOLES [None]
  - DISTURBANCE IN ATTENTION [None]
  - SWELLING [None]
  - FEELING OF BODY TEMPERATURE CHANGE [None]
  - ARRHYTHMIA [None]
  - VISION BLURRED [None]
  - HYPERHIDROSIS [None]
  - DYSPNOEA [None]
